FAERS Safety Report 9475679 (Version 3)
Quarter: 2013Q3

REPORT INFORMATION
  Report Type: Spontaneous
  Country: GB (occurrence: GB)
  Receive Date: 20130826
  Receipt Date: 20130905
  Transmission Date: 20140515
  Serious: Yes (Other)
  Sender: FDA-Public Use
  Company Number: PHFR2013GB004748

PATIENT
  Age: 51 Year
  Sex: Male

DRUGS (2)
  1. CLOZARIL [Suspect]
     Indication: SCHIZOPHRENIA
     Dosage: UNK
     Route: 048
     Dates: start: 20010701
  2. CLOZARIL [Suspect]
     Dosage: UNK
     Route: 048

REACTIONS (5)
  - Cellulitis [Unknown]
  - Cardiac arrest [Unknown]
  - Lower respiratory tract infection [Unknown]
  - Sedation [Not Recovered/Not Resolved]
  - Platelet count decreased [Not Recovered/Not Resolved]
